FAERS Safety Report 7433642-X (Version None)
Quarter: 2011Q2

REPORT INFORMATION
  Report Type: 
  Country: None (occurrence: None)
  Receive Date: 20110422
  Receipt Date: 20110419
  Transmission Date: 20111010
  Serious: Yes (Disabling)
  Sender: FDA-Public Use
  Company Number: FR-MERCK-1104FRA00110

PATIENT
  Age: 80 Year
  Sex: Female

DRUGS (6)
  1. ALPRAZOLAM [Suspect]
     Indication: ANXIETY
     Route: 048
     Dates: start: 20070101, end: 20101201
  2. ASPIRIN LYSINE [Concomitant]
     Route: 065
  3. LABETALOL HYDROCHLORIDE [Concomitant]
     Route: 065
  4. ZOLPIDEM TARTRATE [Suspect]
     Indication: INSOMNIA
     Route: 048
     Dates: start: 20070101, end: 20101201
  5. SINEMET [Suspect]
     Indication: PARKINSON'S DISEASE
     Route: 048
     Dates: start: 20070101, end: 20110201
  6. BENSERAZIDE HYDROCHLORIDE AND LEVODOPA [Suspect]
     Indication: PARKINSON'S DISEASE
     Route: 048
     Dates: start: 20070101, end: 20110201

REACTIONS (3)
  - CHOREOATHETOSIS [None]
  - ANXIETY [None]
  - AGITATION [None]
